FAERS Safety Report 13970243 (Version 3)
Quarter: 2017Q4

REPORT INFORMATION
  Report Type: Spontaneous
  Country: IT (occurrence: IT)
  Receive Date: 20170914
  Receipt Date: 20171107
  Transmission Date: 20180321
  Serious: Yes (Hospitalization)
  Sender: FDA-Public Use
  Company Number: IT-PFIZER INC-2017396088

PATIENT
  Age: 86 Year
  Sex: Female

DRUGS (3)
  1. LYRICA [Suspect]
     Active Substance: PREGABALIN
     Dosage: 1 DF, DAILY
     Route: 048
     Dates: start: 20170901, end: 20170906
  2. BRIVIRAC [Suspect]
     Active Substance: BRIVUDINE
     Indication: HERPES ZOSTER
     Dosage: 1 DF, DAILY
     Route: 048
     Dates: start: 20170901, end: 20170906
  3. FORZAAR [Concomitant]

REACTIONS (2)
  - Decreased appetite [Recovering/Resolving]
  - Vertigo [Recovering/Resolving]

NARRATIVE: CASE EVENT DATE: 20170906
